FAERS Safety Report 21696370 (Version 1)
Quarter: 2022Q4

REPORT INFORMATION
  Report Type: Spontaneous
  Country: US (occurrence: US)
  Receive Date: 20221207
  Receipt Date: 20221207
  Transmission Date: 20230113
  Serious: No
  Sender: FDA-Public Use
  Company Number: US-NOVOPROD-866856

PATIENT
  Age: 55 Year
  Sex: Male

DRUGS (1)
  1. NOVOLIN 70/30 [Suspect]
     Active Substance: INSULIN HUMAN
     Indication: Product used for unknown indication
     Dosage: 19-24 UNITS ONCE A DAY
     Route: 058
     Dates: start: 2006

REACTIONS (4)
  - Back pain [Recovered/Resolved]
  - Constipation [Unknown]
  - Dehydration [Recovered/Resolved]
  - Rash [Unknown]

NARRATIVE: CASE EVENT DATE: 20211103
